FAERS Safety Report 8057767-3 (Version None)
Quarter: 2012Q1

REPORT INFORMATION
  Report Type: 
  Country: None (occurrence: None)
  Receive Date: 20120120
  Receipt Date: 20120112
  Transmission Date: 20120608
  Serious: No
  Sender: FDA-Public Use
  Company Number: US-BIOGENIDEC-2012BI001581

PATIENT
  Age: 29 Year
  Sex: Female

DRUGS (2)
  1. TYSABRI [Suspect]
     Indication: MULTIPLE SCLEROSIS
     Route: 042
     Dates: start: 20120105
  2. BACLOFEN [Concomitant]
     Indication: MUSCLE SPASMS
     Dates: start: 20111001

REACTIONS (3)
  - GAIT DISTURBANCE [None]
  - PARAESTHESIA [None]
  - HYPOAESTHESIA [None]
